FAERS Safety Report 12710081 (Version 1)
Quarter: 2016Q3

REPORT INFORMATION
  Report Type: Spontaneous
  Country: US (occurrence: US)
  Receive Date: 20160902
  Receipt Date: 20160902
  Transmission Date: 20161109
  Serious: No
  Sender: FDA-Public Use
  Company Number: US-GLAXOSMITHKLINE-US2016GSK126105

PATIENT
  Sex: Male
  Weight: 90.7 kg

DRUGS (2)
  1. HABITROL [Suspect]
     Active Substance: NICOTINE
     Indication: SMOKING CESSATION THERAPY
     Dosage: 21 MG, QD
     Route: 062
  2. NICOTINE POLACRILEX [Suspect]
     Active Substance: NICOTINE
     Indication: SMOKING CESSATION THERAPY
     Dosage: UNK (7 GUMS PER DAY FOR THE FIRST 2 DAYS AND ONLY 4 TO 5 GUMS PER DAY THEREAFTER)

REACTIONS (4)
  - Nicotine dependence [Unknown]
  - Incorrect dosage administered [Unknown]
  - Headache [Unknown]
  - Malaise [Unknown]
